FAERS Safety Report 4968224-2 (Version None)
Quarter: 2006Q2

REPORT INFORMATION
  Report Type: 
  Country: None (occurrence: None)
  Receive Date: 20060410
  Receipt Date: 20060329
  Transmission Date: 20061013
  Serious: Yes (Other)
  Sender: FDA-Public Use
  Company Number: CZ-BRISTOL-MYERS SQUIBB COMPANY-13329719

PATIENT
  Age: 79 Year
  Sex: Male

DRUGS (7)
  1. BLEOMYCIN [Suspect]
     Indication: MALIGNANT MELANOMA
     Route: 030
     Dates: start: 20060227, end: 20060303
  2. CARDILAN [Concomitant]
  3. ENAP [Concomitant]
  4. MODURETIC 5-50 [Concomitant]
  5. ASCORUTIN [Concomitant]
  6. VASOCARDIN [Concomitant]
  7. SIMCOR [Concomitant]

REACTIONS (2)
  - LOSS OF CONSCIOUSNESS [None]
  - MULTIPLE FRACTURES [None]
